FAERS Safety Report 7285745-0 (Version None)
Quarter: 2011Q1

REPORT INFORMATION
  Report Type: 
  Country: None (occurrence: None)
  Receive Date: 20110124
  Receipt Date: 20110110
  Transmission Date: 20110831
  Serious: No
  Sender: FDA-Public Use
  Company Number: WSDF_00711

PATIENT
  Age: 17 Year
  Sex: Female

DRUGS (4)
  1. PREDNISONE [Concomitant]
  2. ACETAMINOPHEN [Concomitant]
  3. DIPHENHYDRAMINE [Concomitant]
  4. WINRHO SDF LIQUID [Suspect]
     Indication: IDIOPATHIC THROMBOCYTOPENIC PURPURA
     Dosage: (75 UG/KG TOTAL INTRAVENOUS (NOT OTHERWISE SPECIFIED))
     Route: 042
     Dates: start: 20080219, end: 20080219

REACTIONS (13)
  - PARAESTHESIA [None]
  - VOMITING [None]
  - MYALGIA [None]
  - BLOOD URINE PRESENT [None]
  - INTRAVASCULAR HAEMOLYSIS [None]
  - OVERDOSE [None]
  - LIMB DISCOMFORT [None]
  - HAEMOGLOBINURIA [None]
  - VIRAL INFECTION [None]
  - PAIN IN EXTREMITY [None]
  - NAUSEA [None]
  - HEADACHE [None]
  - DISSEMINATED INTRAVASCULAR COAGULATION [None]
